FAERS Safety Report 5827597-9 (Version None)
Quarter: 2008Q3

REPORT INFORMATION
  Report Type: 
  Country: None (occurrence: None)
  Receive Date: 20080730
  Receipt Date: 20080725
  Transmission Date: 20090109
  Serious: No
  Sender: FDA-Public Use
  Company Number: US-BOEHRINGER INGELHEIM GMBH, GERMANY-2008-BP-11865BP

PATIENT
  Age: 43 Year
  Sex: Male

DRUGS (1)
  1. ZANTAC 150 [Suspect]
     Indication: STOMACH DISCOMFORT
     Route: 048
     Dates: start: 20080725

REACTIONS (2)
  - PAIN [None]
  - VOMITING [None]
